FAERS Safety Report 5511203-7 (Version None)
Quarter: 2007Q4

REPORT INFORMATION
  Report Type: 
  Country: None (occurrence: None)
  Receive Date: 20071109
  Receipt Date: 20071030
  Transmission Date: 20080405
  Serious: Yes (Hospitalization)
  Sender: FDA-Public Use
  Company Number: FR-JNJFOC-20071100360

PATIENT
  Age: 36 Year
  Sex: Female

DRUGS (4)
  1. REMICADE [Suspect]
     Indication: CROHN'S DISEASE
     Route: 042
  2. CETIRIZINE HCL [Concomitant]
     Indication: PREMEDICATION
  3. HYDROCORTISONE [Concomitant]
     Indication: PREMEDICATION
  4. IMUREL [Concomitant]
     Indication: CROHN'S DISEASE

REACTIONS (6)
  - ASTHENIA [None]
  - INFUSION RELATED REACTION [None]
  - MYALGIA [None]
  - PRURITUS [None]
  - PYREXIA [None]
  - URTICARIA [None]
